FAERS Safety Report 9885846 (Version 1)
Quarter: 2014Q1

REPORT INFORMATION
  Report Type: Spontaneous
  Country: CL (occurrence: CL)
  Receive Date: 20140210
  Receipt Date: 20140210
  Transmission Date: 20141002
  Serious: Yes (Other)
  Sender: FDA-Public Use
  Company Number: CL-PFIZER INC-2014034349

PATIENT
  Age: 77 Year
  Sex: Female

DRUGS (4)
  1. XALATAN [Suspect]
     Indication: GLAUCOMA
     Dosage: 1 DROP FOR EACH EYE, 1X/DAY
     Route: 047
     Dates: start: 2010
  2. METFORMIN [Concomitant]
  3. INSULIN [Concomitant]
  4. ATENOLOL [Concomitant]

REACTIONS (6)
  - Type 2 diabetes mellitus [Unknown]
  - Pulmonary fibrosis [Unknown]
  - Defect conduction intraventricular [Unknown]
  - Osteoarthritis [Unknown]
  - Cataract [Unknown]
  - Visual acuity reduced [Unknown]
